FAERS Safety Report 19207977 (Version 1)
Quarter: 2021Q2

REPORT INFORMATION
  Report Type: Spontaneous
  Country: US (occurrence: US)
  Receive Date: 20210503
  Receipt Date: 20210503
  Transmission Date: 20210717
  Serious: No
  Sender: FDA-Public Use
  Company Number: US-ABBVIE-20K-163-3672222-00

PATIENT
  Age: 53 Year
  Sex: Female

DRUGS (1)
  1. CREON [Suspect]
     Active Substance: PANCRELIPASE AMYLASE\PANCRELIPASE LIPASE\PANCRELIPASE PROTEASE
     Indication: PANCREATIC FAILURE
     Dosage: TWO CAPSULES WITH EACH MEAL AND WITH EACH LARGE SNACK?DEPENDS ON THE NUMBER OF MEALS
     Route: 048
     Dates: start: 2019, end: 202010

REACTIONS (5)
  - Ehlers-Danlos syndrome [Recovering/Resolving]
  - Arthralgia [Recovering/Resolving]
  - Aggression [Unknown]
  - Affective disorder [Recovering/Resolving]
  - Irritability [Recovering/Resolving]

NARRATIVE: CASE EVENT DATE: 202001
